FAERS Safety Report 25957967 (Version 3)
Quarter: 2025Q4

REPORT INFORMATION
  Report Type: Spontaneous
  Country: US (occurrence: US)
  Receive Date: 20251024
  Receipt Date: 20251202
  Transmission Date: 20260118
  Serious: No
  Sender: PFIZER
  Company Number: US-PFIZER INC-202500209447

PATIENT
  Age: 25 Year
  Sex: Female
  Weight: 77.1 kg

DRUGS (3)
  1. ZAVZPRET [Suspect]
     Active Substance: ZAVEGEPANT HYDROCHLORIDE
     Indication: Migraine
     Dosage: 10 (UNIT UNSPECIFIED)
     Route: 045
     Dates: start: 20251021, end: 20251021
  2. HUMALOG [Concomitant]
     Active Substance: INSULIN LISPRO
     Indication: Diabetes mellitus
     Dosage: UNK, EVERY TIME PATIENT EAT
  3. PRENAREX PLUS [Concomitant]
     Dosage: UNK, DAILY

REACTIONS (5)
  - Headache [Recovered/Resolved]
  - Neck pain [Recovered/Resolved]
  - Ocular hyperaemia [Recovered/Resolved]
  - Eye irritation [Recovered/Resolved]
  - Body temperature increased [Recovered/Resolved]

NARRATIVE: CASE EVENT DATE: 20251021
